FAERS Safety Report 20006673 (Version 2)
Quarter: 2023Q1

REPORT INFORMATION
  Report Type: Spontaneous
  Country: JP (occurrence: JP)
  Receive Date: 20211028
  Receipt Date: 20230214
  Transmission Date: 20230417
  Serious: Yes (Other)
  Sender: FDA-Public Use
  Company Number: JP-ELI_LILLY_AND_COMPANY-JP202110008987

PATIENT
  Age: 61 Year
  Sex: Male

DRUGS (1)
  1. CYRAMZA [Suspect]
     Active Substance: RAMUCIRUMAB
     Indication: Hepatocellular carcinoma
     Dosage: 8 MG/KG
     Route: 041

REACTIONS (1)
  - Glomerulonephritis rapidly progressive [Recovering/Resolving]
